FAERS Safety Report 15316390 (Version 4)
Quarter: 2019Q1

REPORT INFORMATION
  Report Type: Spontaneous
  Country: US (occurrence: US)
  Receive Date: 20180824
  Receipt Date: 20190118
  Transmission Date: 20190417
  Serious: Yes (Hospitalization, Other)
  Sender: FDA-Public Use
  Company Number: US-OTSUKA-2018_023473

PATIENT
  Age: 53 Year
  Sex: Female

DRUGS (3)
  1. ABILIFY [Suspect]
     Active Substance: ARIPIPRAZOLE
     Indication: MAJOR DEPRESSION
     Dosage: 5 MG, QD
     Route: 065
     Dates: end: 20110814
  2. ABILIFY [Suspect]
     Active Substance: ARIPIPRAZOLE
     Indication: ANXIETY
  3. ABILIFY [Suspect]
     Active Substance: ARIPIPRAZOLE
     Indication: SOCIAL ANXIETY DISORDER

REACTIONS (22)
  - Depressed mood [Unknown]
  - Panic attack [Unknown]
  - Obsessive-compulsive disorder [Recovered/Resolved]
  - Arthritis [Unknown]
  - Compulsive sexual behaviour [Recovered/Resolved]
  - Appetite disorder [Unknown]
  - Suicide attempt [Recovered/Resolved]
  - Disturbance in attention [Unknown]
  - Bankruptcy [Unknown]
  - Gambling disorder [Recovered/Resolved]
  - Economic problem [Unknown]
  - Mood swings [Unknown]
  - Insomnia [Recovered/Resolved]
  - Impulse-control disorder [Unknown]
  - Homeless [Unknown]
  - Mental disorder [Unknown]
  - Suicidal ideation [Recovered/Resolved]
  - Poor quality sleep [Unknown]
  - Product use in unapproved indication [Unknown]
  - Loss of personal independence in daily activities [Unknown]
  - Depression [Unknown]
  - Weight decreased [Unknown]

NARRATIVE: CASE EVENT DATE: 2009
